FAERS Safety Report 10025933 (Version 1)
Quarter: 2014Q1

REPORT INFORMATION
  Report Type: Spontaneous
  Country: DE (occurrence: None)
  Receive Date: 20140314
  Receipt Date: 20140314
  Transmission Date: 20141002
  Serious: Yes (Other)
  Sender: FDA-Public Use
  Company Number: 1403-0504

PATIENT
  Sex: Female

DRUGS (1)
  1. EYLEA [Suspect]
     Indication: AGE-RELATED MACULAR DEGENERATION
     Dosage: 1 IN 8 WEEK
     Dates: start: 2013

REACTIONS (5)
  - Depression [None]
  - Sedation [None]
  - Vision blurred [None]
  - Cataract operation complication [None]
  - Implant site reaction [None]
